FAERS Safety Report 24268194 (Version 3)
Quarter: 2024Q4

REPORT INFORMATION
  Report Type: Report from Study
  Country: US (occurrence: US)
  Receive Date: 20240830
  Receipt Date: 20241011
  Transmission Date: 20250115
  Serious: Yes (Hospitalization)
  Sender: BAYER
  Company Number: US-BAYER-2024A121895

PATIENT
  Age: 80 Year
  Sex: Male

DRUGS (2)
  1. NUBEQA [Suspect]
     Active Substance: DAROLUTAMIDE
     Indication: Prostate cancer
     Dosage: 600 MG, QD
     Route: 048
     Dates: start: 20240701, end: 20240703
  2. NUBEQA [Suspect]
     Active Substance: DAROLUTAMIDE
     Indication: Prostate cancer
     Dosage: 2 TABLETS
     Dates: start: 20240928

REACTIONS (9)
  - Balance disorder [Unknown]
  - Gait inability [Unknown]
  - Brain fog [Unknown]
  - Confusional state [Unknown]
  - Slow response to stimuli [Unknown]
  - Adverse drug reaction [None]
  - Adverse drug reaction [None]
  - Adverse drug reaction [Recovered/Resolved]
  - Off label use [None]

NARRATIVE: CASE EVENT DATE: 20240701
